FAERS Safety Report 6326618-7 (Version None)
Quarter: 2009Q3

REPORT INFORMATION
  Report Type: 
  Country: None (occurrence: None)
  Receive Date: 20090818
  Receipt Date: 20090619
  Transmission Date: 20100115
  Serious: No
  Sender: FDA-Public Use
  Company Number: WAES 0906USA03843

PATIENT
  Sex: Female

DRUGS (1)
  1. JANUVIA [Suspect]
     Indication: TYPE 2 DIABETES MELLITUS
     Dosage: 100 MG/DAILY/PO
     Route: 048
     Dates: start: 20090501, end: 20090610

REACTIONS (9)
  - ABDOMINAL DISTENSION [None]
  - ALOPECIA [None]
  - BACK PAIN [None]
  - BONE PAIN [None]
  - HEADACHE [None]
  - NIGHTMARE [None]
  - SEXUAL DYSFUNCTION [None]
  - VISION BLURRED [None]
  - WEIGHT DECREASED [None]
